FAERS Safety Report 8283600-0 (Version None)
Quarter: 2012Q2

REPORT INFORMATION
  Report Type: 
  Country: None (occurrence: None)
  Receive Date: 20120413
  Receipt Date: 20120409
  Transmission Date: 20120825
  Serious: Yes (Other)
  Sender: FDA-Public Use
  Company Number: BR-ABBOTT-12P-020-0923658-00

PATIENT
  Sex: Male
  Weight: 30 kg

DRUGS (5)
  1. NEULEPTIL [Concomitant]
     Indication: OBSESSIVE-COMPULSIVE PERSONALITY DISORDER
     Route: 048
  2. DEPAKENE [Suspect]
     Indication: EPILEPSY
     Dosage: 1.5 TABLET IN THE MORNING, 1.5 TABLET AT DAWN AND 1 TABLET IN THE AFTERNOON
     Route: 048
  3. LAMOTRGINE [Concomitant]
     Indication: CONVULSION PROPHYLAXIS
     Route: 048
  4. DEPAKENE [Suspect]
  5. NITRAZEPAM [Concomitant]
     Indication: CONVULSION PROPHYLAXIS
     Route: 048

REACTIONS (5)
  - SALIVARY HYPERSECRETION [None]
  - THROMBOCYTOPENIA [None]
  - GASTROOESOPHAGEAL REFLUX DISEASE [None]
  - TABLET PHYSICAL ISSUE [None]
  - ULCER [None]
